FAERS Safety Report 11122653 (Version 1)
Quarter: 2015Q2

REPORT INFORMATION
  Report Type: Spontaneous
  Country: NL (occurrence: NL)
  Receive Date: 20150519
  Receipt Date: 20150519
  Transmission Date: 20150821
  Serious: Yes (Other)
  Sender: FDA-Public Use
  Company Number: NL-CIPLA LTD.-2015NL03867

PATIENT

DRUGS (7)
  1. PIMOZIDE [Suspect]
     Active Substance: PIMOZIDE
     Route: 065
  2. CITALOPRAM [Suspect]
     Active Substance: CITALOPRAM HYDROBROMIDE
     Route: 065
  3. THIORIDAZINE [Suspect]
     Active Substance: THIORIDAZINE
     Route: 065
  4. RISPERIDONE. [Suspect]
     Active Substance: RISPERIDONE
     Dosage: 1.5 MG, UNK
     Route: 065
  5. QUETIAPINE [Suspect]
     Active Substance: QUETIAPINE
     Route: 065
  6. HALOPERIDOL. [Suspect]
     Active Substance: HALOPERIDOL
     Route: 065
  7. CLOZAPINE. [Suspect]
     Active Substance: CLOZAPINE
     Route: 065

REACTIONS (5)
  - Drug ineffective [Unknown]
  - Adverse event [Unknown]
  - Mental disability [None]
  - Disease progression [Unknown]
  - Drug resistance [Unknown]
